FAERS Safety Report 8842425 (Version 3)
Quarter: 2012Q4

REPORT INFORMATION
  Report Type: 
  Country: JP (occurrence: JP)
  Receive Date: 20121016
  Receipt Date: 20121026
  Transmission Date: 20130627
  Serious: Yes (Life-Threatening, Hospitalization, Other)
  Sender: FDA-Public Use
  Company Number: JP-PFIZER INC-2012238360

PATIENT
  Age: 64 Year
  Sex: Female

DRUGS (7)
  1. CELECOX [Suspect]
     Indication: TENOSYNOVITIS
     Dosage: 100 mg, 2x/day
     Route: 048
     Dates: start: 20120703, end: 20120703
  2. DIOVAN [Concomitant]
     Indication: HYPERTENSION
     Dosage: 80 mg, 2x/day
     Route: 048
     Dates: start: 20070611
  3. RIZE [Concomitant]
     Indication: HYPERTENSION
     Dosage: 5 mg, 2x/day
     Route: 048
     Dates: start: 20070611
  4. LIPITOR [Concomitant]
     Indication: HYPERLIPIDAEMIA
     Dosage: 10 mg, 1x/day
     Route: 048
     Dates: start: 20070611
  5. HERBESSER R [Concomitant]
     Indication: HYPERTENSION
     Dosage: 100 mg, 1x/day
     Route: 048
     Dates: start: 20070611
  6. ZEFNART [Concomitant]
     Indication: TINEA INFECTION
     Dosage: 0.3 g, 2x/day
     Route: 062
  7. SULCAIN [Concomitant]
     Indication: GASTRITIS PROPHYLAXIS
     Dosage: 100 mg, 2x/day
     Route: 048
     Dates: start: 20120703

REACTIONS (1)
  - Liver disorder [Recovered/Resolved]
